FAERS Safety Report 6173154-7 (Version None)
Quarter: 2009Q2

REPORT INFORMATION
  Report Type: 
  Country: None (occurrence: None)
  Receive Date: 20090424
  Receipt Date: 20081215
  Transmission Date: 20091009
  Serious: No
  Sender: FDA-Public Use
  Company Number: ALL1-2008-03560

PATIENT
  Age: 16 Year
  Sex: Male
  Weight: 72.1 kg

DRUGS (2)
  1. VYVANSE [Suspect]
     Indication: ATTENTION DEFICIT/HYPERACTIVITY DISORDER
     Dosage: 30 MG, 1X/DAY:QD, ORAL ; 40 MG, 1X/DAY:QD, ORAL
     Route: 048
     Dates: start: 20071201, end: 20081001
  2. VYVANSE [Suspect]
     Indication: ATTENTION DEFICIT/HYPERACTIVITY DISORDER
     Dosage: 30 MG, 1X/DAY:QD, ORAL ; 40 MG, 1X/DAY:QD, ORAL
     Route: 048
     Dates: start: 20081001

REACTIONS (9)
  - ABDOMINAL PAIN UPPER [None]
  - DRUG INEFFECTIVE [None]
  - EAR INFECTION [None]
  - FATIGUE [None]
  - INFECTIOUS MONONUCLEOSIS [None]
  - INSOMNIA [None]
  - NAUSEA [None]
  - OFF LABEL USE [None]
  - OROPHARYNGEAL PAIN [None]
